FAERS Safety Report 5194076-4 (Version None)
Quarter: 2006Q4

REPORT INFORMATION
  Report Type: 
  Country: None (occurrence: None)
  Receive Date: 20061228
  Receipt Date: 20060808
  Transmission Date: 20070319
  Serious: Yes (Hospitalization)
  Sender: FDA-Public Use
  Company Number: US-ROCHE-476091

PATIENT
  Age: 54 Year
  Sex: Male
  Weight: 81.6 kg

DRUGS (19)
  1. PEG-INTERFERON ALFA 2A (RO 25-8310) [Suspect]
     Dosage: THERAPY TEMPORARILY DISCONTINUED ON 08 AUGUST 2006 DATE OF LAST DOSE: 02 SEPTEMBER 2006
     Route: 058
     Dates: start: 20060729, end: 20060905
  2. RIBAVIRIN [Suspect]
     Route: 048
     Dates: start: 20060724, end: 20060808
  3. LEXAPRO [Concomitant]
     Route: 048
  4. BUMEX [Concomitant]
     Route: 048
  5. TRIZIVIR [Concomitant]
     Route: 048
  6. DEPAKOTE [Concomitant]
     Route: 048
  7. MINERAL NOS/MULTIVITAMIN NOS [Concomitant]
     Route: 048
  8. OXYCODONE HCL [Concomitant]
     Dosage: PRN
     Route: 048
  9. MARINOL [Concomitant]
     Route: 048
  10. XANAX [Concomitant]
     Route: 048
  11. TRAZODONE HCL [Concomitant]
     Route: 048
  12. VIREAD [Concomitant]
     Route: 048
  13. ASPIRIN [Concomitant]
  14. K-DUR 10 [Concomitant]
     Route: 048
  15. OXYCONTIN [Concomitant]
     Route: 048
  16. PROVENTIL [Concomitant]
     Dosage: ONE INHALER
     Route: 055
  17. LORTAB [Concomitant]
     Route: 048
  18. VIAGRA [Concomitant]
     Dosage: PRN
     Route: 048
  19. ANDROGEL [Concomitant]
     Dosage: 1% 30 X 5GM PACKET - APPLY ONE PACKET DAILY

REACTIONS (7)
  - AMNESIA [None]
  - ANOREXIA [None]
  - CONFUSIONAL STATE [None]
  - ENCEPHALOPATHY [None]
  - FATIGUE [None]
  - GAIT DISTURBANCE [None]
  - NEUTROPENIA [None]
